FAERS Safety Report 21994064 (Version 2)
Quarter: 2023Q1

REPORT INFORMATION
  Report Type: Spontaneous
  Country: US (occurrence: US)
  Receive Date: 20230215
  Receipt Date: 20230306
  Transmission Date: 20230418
  Serious: Yes (Other)
  Sender: FDA-Public Use
  Company Number: US-COOPERSURGICAL, INC.-US-2023CPS000458

PATIENT
  Age: 36 Year
  Sex: Female
  Weight: 142.4 kg

DRUGS (1)
  1. PARAGARD T 380A [Suspect]
     Active Substance: COPPER
     Indication: Contraception
     Dosage: UNK
     Route: 015
     Dates: start: 20220331, end: 20220505

REACTIONS (4)
  - Uterine leiomyoma [Not Recovered/Not Resolved]
  - Off label use [Unknown]
  - Emotional distress [Unknown]
  - Device dislocation [Recovered/Resolved]

NARRATIVE: CASE EVENT DATE: 20220331
